FAERS Safety Report 9916262 (Version 1)
Quarter: 2014Q1

REPORT INFORMATION
  Report Type: Spontaneous
  Country: US (occurrence: US)
  Receive Date: 20140221
  Receipt Date: 20140221
  Transmission Date: 20141002
  Serious: No
  Sender: FDA-Public Use
  Company Number: US-009507513-1402USA005463

PATIENT
  Age: 81 Year
  Sex: Male

DRUGS (3)
  1. DULERA [Suspect]
     Indication: CHRONIC OBSTRUCTIVE PULMONARY DISEASE
     Dosage: UNK, DOSE: 1 PUFF IN THE MORNING AND 1 PUFF IN THE EVENING.
     Route: 055
     Dates: start: 20140102
  2. SPIRIVA [Concomitant]
  3. PROVENTIL [Concomitant]

REACTIONS (2)
  - Oropharyngeal pain [Recovered/Resolved]
  - Product quality issue [Unknown]
